FAERS Safety Report 5083150-9 (Version None)
Quarter: 2006Q3

REPORT INFORMATION
  Report Type: 
  Country: None (occurrence: None)
  Receive Date: 20060724
  Receipt Date: 20031121
  Transmission Date: 20061208
  Serious: Yes (Hospitalization)
  Sender: FDA-Public Use
  Company Number: DRON00206001391

PATIENT
  Age: 48 Year
  Sex: Female
  Weight: 74 kg

DRUGS (2)
  1. MARINOL [Suspect]
     Indication: MUSCLE SPASTICITY
     Dates: start: 20020613, end: 20030611
  2. IBUPROFEN [Concomitant]
     Indication: MULTIPLE SCLEROSIS

REACTIONS (3)
  - AFFECT LABILITY [None]
  - ASTHENIA [None]
  - URINARY TRACT INFECTION [None]
